FAERS Safety Report 20348863 (Version 4)
Quarter: 2022Q1

REPORT INFORMATION
  Report Type: Spontaneous
  Country: IT (occurrence: IT)
  Receive Date: 20220119
  Receipt Date: 20220218
  Transmission Date: 20220423
  Serious: Yes (Life-Threatening, Hospitalization)
  Sender: FDA-Public Use
  Company Number: IT-CELGENE-ITA-20220103946

PATIENT
  Age: 51 Year
  Sex: Male

DRUGS (18)
  1. LENALIDOMIDE [Suspect]
     Active Substance: LENALIDOMIDE
     Indication: Plasma cell myeloma
     Route: 048
     Dates: start: 20211027, end: 20220106
  2. DEXAMETHASONE [Suspect]
     Active Substance: DEXAMETHASONE
     Indication: Plasma cell myeloma
     Route: 048
     Dates: start: 20211026, end: 20220104
  3. ISATUXIMAB [Suspect]
     Active Substance: ISATUXIMAB
     Indication: Plasma cell myeloma
     Route: 065
     Dates: start: 20211026
  4. ISATUXIMAB [Suspect]
     Active Substance: ISATUXIMAB
     Route: 065
     Dates: start: 20211123
  5. CARFILZOMIB [Suspect]
     Active Substance: CARFILZOMIB
     Indication: Plasma cell myeloma
     Route: 041
     Dates: start: 20211102, end: 20220104
  6. MONTELUKAST [Concomitant]
     Active Substance: MONTELUKAST SODIUM
     Indication: Prophylaxis
     Route: 065
     Dates: start: 20211025
  7. OXYGEN [Concomitant]
     Active Substance: OXYGEN
     Indication: Respiratory distress
     Route: 065
     Dates: start: 20211126, end: 20211126
  8. OXYGEN [Concomitant]
     Active Substance: OXYGEN
     Dosage: 2 L/MIN AS NEEDED
     Route: 065
     Dates: start: 20220113, end: 20220125
  9. HYDROCORTISONE SODIUM SUCCINATE [Concomitant]
     Active Substance: HYDROCORTISONE SODIUM SUCCINATE
     Indication: Respiratory distress
     Route: 065
     Dates: start: 20211026, end: 20211026
  10. TRIMETON [Concomitant]
     Active Substance: CHLORPHENIRAMINE MALEATE
     Indication: Respiratory distress
     Route: 065
     Dates: start: 20211026, end: 20211026
  11. TRIMETON [Concomitant]
     Active Substance: CHLORPHENIRAMINE MALEATE
     Route: 065
     Dates: start: 20211123, end: 20211123
  12. FUROSEMIDE [Concomitant]
     Active Substance: FUROSEMIDE
     Indication: Respiratory distress
     Route: 041
     Dates: start: 20211026, end: 20211026
  13. FUROSEMIDE [Concomitant]
     Active Substance: FUROSEMIDE
     Route: 041
     Dates: start: 20211116
  14. ACETAMINOPHEN [Concomitant]
     Active Substance: ACETAMINOPHEN
     Indication: Respiratory distress
     Route: 065
     Dates: start: 20211123, end: 20211123
  15. FAMOTIDINA [Concomitant]
     Indication: Respiratory distress
     Route: 065
     Dates: start: 20211123, end: 20211123
  16. covid vaccine [Concomitant]
     Indication: Prophylaxis
     Dosage: PFIZER FIRST DOSE
     Route: 065
     Dates: start: 20210414, end: 20210414
  17. covid vaccine [Concomitant]
     Dosage: PFIZER SECOND DOSE
     Route: 065
     Dates: start: 20210505, end: 20210505
  18. covid vaccine [Concomitant]
     Dosage: PFIZER THIRD DOSE
     Route: 065
     Dates: start: 20210922, end: 20210922

REACTIONS (1)
  - COVID-19 pneumonia [Recovered/Resolved]

NARRATIVE: CASE EVENT DATE: 20220113
